FAERS Safety Report 24369370 (Version 1)
Quarter: 2024Q3

REPORT INFORMATION
  Report Type: Report from Study
  Country: US (occurrence: US)
  Receive Date: 20240927
  Receipt Date: 20240927
  Transmission Date: 20241017
  Serious: No
  Sender: ROCHE
  Company Number: US-ROCHE-3223610

PATIENT
  Age: 65 Year
  Sex: Male

DRUGS (4)
  1. LUCENTIS [Suspect]
     Active Substance: RANIBIZUMAB
     Indication: Macular degeneration
     Dosage: INJECT 0.5MG VIA INTRAVITREAL ADMINISTRATION INTO THE RIGHT EYE EVERY 4 WEEK(S)
     Route: 050
  2. VABYSMO [Suspect]
     Active Substance: FARICIMAB-SVOA
     Indication: Macular degeneration
     Dosage: INJECT 6 MG VIA INTRAVITREAL ADMINISTRATION EVERY 4 WEEK(S) AS NEEDED
     Route: 050
  3. LOSARTAN [Concomitant]
     Active Substance: LOSARTAN\LOSARTAN POTASSIUM
  4. HYDROCHLOROTHIAZIDE [Concomitant]
     Active Substance: HYDROCHLOROTHIAZIDE

REACTIONS (2)
  - Off label use [Unknown]
  - No adverse event [Unknown]
